FAERS Safety Report 19619433 (Version 1)
Quarter: 2021Q3

REPORT INFORMATION
  Report Type: Spontaneous
  Country: US (occurrence: US)
  Receive Date: 20210728
  Receipt Date: 20210728
  Transmission Date: 20211014
  Serious: No
  Sender: FDA-Public Use
  Company Number: US-ROCHE-2703307

PATIENT
  Age: 60 Year
  Sex: Male

DRUGS (2)
  1. XELODA [Suspect]
     Active Substance: CAPECITABINE
     Indication: NEUROENDOCRINE TUMOUR
     Route: 048
     Dates: start: 20201019
  2. XELODA [Suspect]
     Active Substance: CAPECITABINE
     Route: 048
     Dates: start: 202009

REACTIONS (8)
  - Off label use [Unknown]
  - Anxiety [Unknown]
  - Arthralgia [Unknown]
  - Nausea [Unknown]
  - Vomiting [Unknown]
  - Tension headache [Unknown]
  - Joint lock [Unknown]
  - Intentional product use issue [Unknown]

NARRATIVE: CASE EVENT DATE: 20201004
